FAERS Safety Report 4500468-6 (Version None)
Quarter: 2004Q3

REPORT INFORMATION
  Report Type: 
  Country: None (occurrence: None)
  Receive Date: 20040928
  Receipt Date: 20040805
  Transmission Date: 20050211
  Serious: No
  Sender: FDA-Public Use
  Company Number: 04P-162-0269278-00

PATIENT
  Age: 44 Year
  Sex: Male
  Weight: 90.7194 kg

DRUGS (11)
  1. HUMIRA [Suspect]
     Indication: RHEUMATOID ARTHRITIS
     Dosage: 40 MG, 1 IN 2 WK, SUBCUTANEOUS
     Route: 058
     Dates: start: 20030901, end: 20040401
  2. PREDNISONE [Concomitant]
  3. METHADONE [Concomitant]
  4. HYDROMORPHONE HYDROCHLORIDE [Concomitant]
  5. FUROSEMIDE [Concomitant]
  6. METOPROLOL SUCCINATE [Concomitant]
  7. TOPIRMATE [Concomitant]
  8. RESTERIL [Concomitant]
  9. CARISOPRODOL [Concomitant]
  10. FORTEO [Concomitant]
  11. COUMADIN [Concomitant]

REACTIONS (1)
  - SINUSITIS [None]
